APPROVED DRUG PRODUCT: LINEZOLID
Active Ingredient: LINEZOLID
Strength: 600MG
Dosage Form/Route: TABLET;ORAL
Application: A205517 | Product #001 | TE Code: AB
Applicant: ALKEM LABORATORIES LTD
Approved: Dec 21, 2015 | RLD: No | RS: Yes | Type: RX